FAERS Safety Report 5099599-4 (Version None)
Quarter: 2006Q3

REPORT INFORMATION
  Report Type: 
  Country: None (occurrence: None)
  Receive Date: 20060908
  Receipt Date: 20060830
  Transmission Date: 20061208
  Serious: Yes (Life-Threatening, Other)
  Sender: FDA-Public Use
  Company Number: JP-BRISTOL-MYERS SQUIBB COMPANY-13499413

PATIENT
  Sex: Male

DRUGS (2)
  1. IFOMIDE [Suspect]
     Indication: SARCOMA
     Route: 042
  2. ADRIAMYCIN PFS [Suspect]
     Indication: SARCOMA
     Route: 042

REACTIONS (3)
  - CARDIO-RESPIRATORY ARREST [None]
  - ENCEPHALOPATHY [None]
  - LOSS OF CONSCIOUSNESS [None]
